FAERS Safety Report 4333703-8 (Version None)
Quarter: 2004Q2

REPORT INFORMATION
  Report Type: 
  Country: None (occurrence: None)
  Receive Date: 20040402
  Receipt Date: 20040323
  Transmission Date: 20050107
  Serious: Yes (Other)
  Sender: FDA-Public Use
  Company Number: AU-JNJFOC-20040303533

PATIENT
  Age: 16 Year
  Sex: Male
  Weight: 43 kg

DRUGS (5)
  1. TOPAMAX [Suspect]
     Indication: EPILEPSY
     Dosage: 50 MG, 3 IN 1 DAY
  2. CLOBAZAM (CLOBAZAM) [Concomitant]
  3. LAMOTRIGINE [Concomitant]
  4. OMEPRAZOLE [Concomitant]
  5. IRON (IRON) [Concomitant]

REACTIONS (2)
  - CONVULSION [None]
  - GASTROINTESTINAL DISORDER [None]
